FAERS Safety Report 9546676 (Version 1)
Quarter: 2013Q3

REPORT INFORMATION
  Report Type: Spontaneous
  Country: US (occurrence: US)
  Receive Date: 20130924
  Receipt Date: 20130924
  Transmission Date: 20140515
  Serious: No
  Sender: FDA-Public Use
  Company Number: US-BIOGENIDEC-2013BI087597

PATIENT
  Age: 59 Year
  Sex: Female

DRUGS (5)
  1. AVONEX [Suspect]
     Indication: MULTIPLE SCLEROSIS
     Route: 030
     Dates: start: 20020805, end: 2003
  2. AVONEX [Suspect]
     Indication: MULTIPLE SCLEROSIS
     Route: 030
     Dates: start: 2003, end: 20130626
  3. LITHIUM [Concomitant]
     Indication: BIPOLAR I DISORDER
  4. PROZAC [Concomitant]
     Indication: BIPOLAR I DISORDER
  5. XANAX [Concomitant]
     Indication: BIPOLAR I DISORDER

REACTIONS (3)
  - Musculoskeletal disorder [Not Recovered/Not Resolved]
  - Influenza like illness [Recovered/Resolved]
  - Depression [Recovered/Resolved]
